FAERS Safety Report 4545293-5 (Version None)
Quarter: 2004Q4

REPORT INFORMATION
  Report Type: 
  Country: None (occurrence: None)
  Receive Date: 20041222
  Receipt Date: 20040525
  Transmission Date: 20050328
  Serious: Yes (Hospitalization, Other)
  Sender: FDA-Public Use
  Company Number: USA040568448

PATIENT
  Age: 84 Year
  Sex: Male
  Weight: 70 kg

DRUGS (4)
  1. HUMULIN-HUMAN INSULIN (RDNA) :30% REGULAR, 70% NPH (E [Suspect]
     Dosage: 34 U/L IN THE MORNING
     Dates: start: 19820201
  2. HUMULIN N [Suspect]
     Dates: start: 19820201
  3. HUMULIN R [Suspect]
  4. HUMALOG [Suspect]
     Dosage: 6 U/1 IN THE MORNING
     Dates: start: 20031201

REACTIONS (10)
  - BLOOD GLUCOSE DECREASED [None]
  - BLOOD GLUCOSE FLUCTUATION [None]
  - CATARACT [None]
  - DECREASED APPETITE [None]
  - EYE DISORDER [None]
  - MACULAR DEGENERATION [None]
  - SKIN ULCER [None]
  - TREMOR [None]
  - VISUAL ACUITY REDUCED [None]
  - WEIGHT DECREASED [None]
